FAERS Safety Report 8187726-1 (Version None)
Quarter: 2012Q1

REPORT INFORMATION
  Report Type: 
  Country: None (occurrence: None)
  Receive Date: 20120306
  Receipt Date: 20120227
  Transmission Date: 20120608
  Serious: Yes (Other)
  Sender: FDA-Public Use
  Company Number: US-BAYER-2012-000675

PATIENT
  Age: 23 Year
  Sex: Female

DRUGS (1)
  1. MIRENA [Suspect]
     Indication: CONTRACEPTION
     Dosage: 20 MCG/24HR, CONT
     Route: 015
     Dates: start: 20111219, end: 20120103

REACTIONS (8)
  - ABDOMINAL DISCOMFORT [None]
  - PELVIC PAIN [None]
  - VAGINAL HAEMORRHAGE [None]
  - POST PROCEDURAL DISCOMFORT [None]
  - ABDOMINAL PAIN UPPER [None]
  - ABDOMINAL DISTENSION [None]
  - NAUSEA [None]
  - DEVICE EXPULSION [None]
